FAERS Safety Report 14848676 (Version 1)
Quarter: 2018Q2

REPORT INFORMATION
  Report Type: Report from Study
  Country: GB (occurrence: GB)
  Receive Date: 20180504
  Receipt Date: 20180504
  Transmission Date: 20180711
  Serious: Yes (Hospitalization, Other)
  Sender: FDA-Public Use
  Company Number: GB-INCYTE CORPORATION-2017IN002153

PATIENT

DRUGS (2)
  1. JAKAVI [Suspect]
     Active Substance: RUXOLITINIB
     Indication: MYELOFIBROSIS
     Dosage: 20 MG, BID
     Route: 048
     Dates: start: 20141112
  2. LANSOPRAZOLE. [Concomitant]
     Active Substance: LANSOPRAZOLE
     Indication: DYSPEPSIA
     Dosage: 30 MG, QD
     Route: 048
     Dates: start: 2017

REACTIONS (9)
  - Vomiting [Recovered/Resolved]
  - Fall [Recovered/Resolved]
  - Back pain [Recovered/Resolved]
  - Urinary tract infection [Recovered/Resolved]
  - Anaemia [Not Recovered/Not Resolved]
  - Urinary tract infection [Recovered/Resolved]
  - Anaemia [Recovered/Resolved with Sequelae]
  - Dyspepsia [Recovered/Resolved]
  - Nausea [Recovered/Resolved]

NARRATIVE: CASE EVENT DATE: 20170111
